FAERS Safety Report 17250822 (Version 1)
Quarter: 2020Q1

REPORT INFORMATION
  Report Type: Spontaneous
  Country: DE (occurrence: DE)
  Receive Date: 20200109
  Receipt Date: 20200109
  Transmission Date: 20200409
  Serious: Yes (Disabling)
  Sender: FDA-Public Use
  Company Number: DE-SA-2019SA313962

PATIENT
  Sex: Female

DRUGS (1)
  1. LEMTRADA [Suspect]
     Active Substance: ALEMTUZUMAB
     Indication: ACUTE DISSEMINATED ENCEPHALOMYELITIS
     Dosage: 12 MG, QD
     Route: 041
     Dates: start: 20181012

REACTIONS (6)
  - Movement disorder [Not Recovered/Not Resolved]
  - Off label use [Unknown]
  - Collagen disorder [Not Recovered/Not Resolved]
  - Frostbite [Unknown]
  - Vasculitis [Unknown]
  - Pain [Not Recovered/Not Resolved]
